FAERS Safety Report 9325102 (Version 2)
Quarter: 2013Q4

REPORT INFORMATION
  Report Type: Spontaneous
  Country: US (occurrence: US)
  Receive Date: 20130603
  Receipt Date: 20131114
  Transmission Date: 20140711
  Serious: Yes (Death, Hospitalization, Other)
  Sender: FDA-Public Use
  Company Number: US-B.I. PHARMACEUTICALS,INC./RIDGEFIELD-2013-BI-15460BP

PATIENT
  Age: 53 Year
  Sex: Female
  Weight: 81.65 kg

DRUGS (7)
  1. PRADAXA [Suspect]
     Indication: ANTICOAGULANT THERAPY
     Dosage: 300 MG
     Route: 048
     Dates: start: 20111231, end: 20120217
  2. PRADAXA [Suspect]
     Indication: ATRIAL FIBRILLATION
  3. COREG [Concomitant]
     Dosage: 12.5 MG
     Route: 048
  4. PANTOPRAZOLE [Concomitant]
     Dosage: 40 MG
     Route: 048
  5. QUESTRAN [Concomitant]
     Dosage: 8 G
     Route: 048
  6. LASIX [Concomitant]
     Dosage: 20 MG
     Route: 048
  7. KCL [Concomitant]
     Dosage: 20 MEQ
     Route: 048

REACTIONS (6)
  - Upper gastrointestinal haemorrhage [Fatal]
  - Septic shock [Fatal]
  - Coagulopathy [Unknown]
  - Encephalopathy [Unknown]
  - Haemorrhagic anaemia [Unknown]
  - Ventricular tachycardia [Unknown]
